FAERS Safety Report 5759242-5 (Version None)
Quarter: 2008Q2

REPORT INFORMATION
  Report Type: 
  Country: None (occurrence: None)
  Receive Date: 20080604
  Receipt Date: 20080526
  Transmission Date: 20081010
  Serious: Yes (Other)
  Sender: FDA-Public Use
  Company Number: CA-PFIZER INC-2008045171

PATIENT
  Age: 48 Year
  Sex: Female

DRUGS (1)
  1. AROMASIN [Suspect]
     Dates: start: 20070901, end: 20080301

REACTIONS (4)
  - AMNESIA [None]
  - COGNITIVE DISORDER [None]
  - DISTURBANCE IN ATTENTION [None]
  - FATIGUE [None]
